FAERS Safety Report 10166671 (Version 1)
Quarter: 2014Q2

REPORT INFORMATION
  Report Type: Spontaneous
  Country: JP (occurrence: JP)
  Receive Date: 20140512
  Receipt Date: 20140512
  Transmission Date: 20141212
  Serious: Yes (Other)
  Sender: FDA-Public Use
  Company Number: JP-PFIZER INC-2014125458

PATIENT
  Sex: 0
  Weight: .98 kg

DRUGS (2)
  1. HEPARIN SODIUM [Suspect]
     Indication: ANTIPHOSPHOLIPID SYNDROME
     Dosage: 10,000 U/DAY
     Route: 064
  2. ACETYLSALICYLIC ACID [Suspect]
     Indication: ANTIPHOSPHOLIPID SYNDROME
     Dosage: 81 MG, DAILY
     Route: 064

REACTIONS (2)
  - Maternal exposure during pregnancy [Unknown]
  - Premature baby [Unknown]
